FAERS Safety Report 13186301 (Version 2)
Quarter: 2017Q3

REPORT INFORMATION
  Report Type: Spontaneous
  Country: US (occurrence: US)
  Receive Date: 20170204
  Receipt Date: 20170809
  Transmission Date: 20171127
  Serious: No
  Sender: FDA-Public Use
  Company Number: US-TEVA-728805ACC

PATIENT
  Sex: Female

DRUGS (1)
  1. PROAIR HFA [Suspect]
     Active Substance: ALBUTEROL SULFATE

REACTIONS (5)
  - Nasopharyngitis [Unknown]
  - Intentional product misuse [Unknown]
  - Malaise [Unknown]
  - Vomiting [Unknown]
  - Drug prescribing error [Unknown]
